FAERS Safety Report 12955445 (Version 1)
Quarter: 2016Q4

REPORT INFORMATION
  Report Type: Spontaneous
  Country: US (occurrence: US)
  Receive Date: 20161118
  Receipt Date: 20161118
  Transmission Date: 20170207
  Serious: No
  Sender: FDA-Public Use
  Company Number: US-PERRIGO-16US019287

PATIENT
  Age: 70 Year
  Sex: Female
  Weight: 48.98 kg

DRUGS (2)
  1. POLYETHYLENE GLYCOL 3350. [Suspect]
     Active Substance: POLYETHYLENE GLYCOL 3350
     Indication: CONSTIPATION
     Dosage: 34 G, BID
     Route: 048
     Dates: start: 20160801
  2. IRON [Suspect]
     Active Substance: IRON
     Indication: IRON DEFICIENCY
     Dosage: 1 TABLET, QD
     Route: 048
     Dates: start: 201607

REACTIONS (5)
  - Faeces discoloured [Unknown]
  - Overdose [Unknown]
  - Inappropriate schedule of drug administration [Unknown]
  - Diarrhoea [Unknown]
  - Incorrect drug administration duration [Unknown]

NARRATIVE: CASE EVENT DATE: 201608
